FAERS Safety Report 26095253 (Version 1)
Quarter: 2025Q4

REPORT INFORMATION
  Report Type: Spontaneous
  Country: RU (occurrence: RU)
  Receive Date: 20251127
  Receipt Date: 20251127
  Transmission Date: 20260117
  Serious: Yes (Other)
  Sender: JOHNSON AND JOHNSON
  Company Number: RU-JNJFOC-20251160908

PATIENT
  Age: 39 Year
  Sex: Male
  Weight: 53 kg

DRUGS (9)
  1. SIRTURO [Suspect]
     Active Substance: BEDAQUILINE FUMARATE
     Indication: Pulmonary tuberculosis
     Dosage: FREQUENCY OF ADMINISTRATION: 3 WEEKS
     Route: 048
     Dates: start: 20250515, end: 20251029
  2. LEVOFLOXACIN [Suspect]
     Active Substance: LEVOFLOXACIN
     Indication: Pulmonary tuberculosis
     Dosage: 1 DAY
     Route: 048
     Dates: start: 20250508, end: 20250813
  3. LINEZOLID [Suspect]
     Active Substance: LINEZOLID
     Indication: Pulmonary tuberculosis
     Dosage: 1 DAY
     Route: 048
     Dates: start: 20250508, end: 20250529
  4. LINEZOLID [Suspect]
     Active Substance: LINEZOLID
     Dosage: 1 DAY
     Route: 048
     Dates: start: 20250901
  5. CAPREOMYCIN [Suspect]
     Active Substance: CAPREOMYCIN
     Indication: Pulmonary tuberculosis
     Dosage: 1 DAY
     Route: 030
     Dates: start: 20250619, end: 20250722
  6. TERIZIDONE [Suspect]
     Active Substance: TERIZIDONE
     Indication: Pulmonary tuberculosis
     Dosage: 2 DAYS
     Route: 048
     Dates: start: 20250512
  7. ETHAMBUTOL [Suspect]
     Active Substance: ETHAMBUTOL HYDROCHLORIDE
     Indication: Pulmonary tuberculosis
     Dosage: 1 DAY
     Route: 048
     Dates: start: 20250814
  8. MOXIFLOXACIN [Suspect]
     Active Substance: MOXIFLOXACIN
     Indication: Pulmonary tuberculosis
     Dosage: 1 DAY
     Route: 048
     Dates: start: 20250813
  9. PYRAZINAMIDE [Suspect]
     Active Substance: PYRAZINAMIDE
     Indication: Pulmonary tuberculosis
     Dosage: 1 DAY
     Route: 048
     Dates: start: 20250512, end: 20250718

REACTIONS (6)
  - Hypokalaemia [Recovering/Resolving]
  - Neuropathy peripheral [Not Recovered/Not Resolved]
  - Anaemia [Not Recovered/Not Resolved]
  - Blood creatinine increased [Recovering/Resolving]
  - Hyponatraemia [Recovering/Resolving]
  - Dyshidrotic eczema [Not Recovered/Not Resolved]

NARRATIVE: CASE EVENT DATE: 20250512
